FAERS Safety Report 8163914-5 (Version None)
Quarter: 2012Q1

REPORT INFORMATION
  Report Type: 
  Country: None (occurrence: None)
  Receive Date: 20120224
  Receipt Date: 20120218
  Transmission Date: 20120608
  Serious: No
  Sender: FDA-Public Use
  Company Number: US-BAYER-2012-017244

PATIENT
  Age: 21 Year
  Sex: Male
  Weight: 73 kg

DRUGS (2)
  1. IBUPROFEN [Concomitant]
     Dosage: 800 MG, ONCE (X3 TABLETS)
  2. ALEVE (CAPLET) [Suspect]
     Indication: HEADACHE
     Dosage: 2 TABLETS ONCE
     Route: 048

REACTIONS (2)
  - HEADACHE [None]
  - DIZZINESS [None]
